FAERS Safety Report 6590425-0 (Version None)
Quarter: 2010Q1

REPORT INFORMATION
  Report Type: 
  Country: None (occurrence: None)
  Receive Date: 20100219
  Receipt Date: 20100216
  Transmission Date: 20100710
  Serious: Yes (Life-Threatening, Hospitalization, Disabling, Other)
  Sender: FDA-Public Use
  Company Number: DE-B.I. PHARMACEUTICALS,INC./RIDGEFIELD-2010-DE-01144DE

PATIENT
  Sex: Male
  Weight: 92 kg

DRUGS (4)
  1. AGGRENOX [Suspect]
     Dosage: 2 ANZ
     Route: 048
     Dates: end: 20100111
  2. RAMIPRIL [Concomitant]
     Dosage: 2.5 MG
     Route: 048
  3. SIMVAHEXAL [Concomitant]
     Dosage: 20 MG
     Route: 048
  4. CITALOPRAM HYDROBROMIDE [Concomitant]
     Dosage: 10 MG
     Route: 048

REACTIONS (2)
  - CEREBRAL HAEMORRHAGE [None]
  - ISCHAEMIC CEREBRAL INFARCTION [None]
